FAERS Safety Report 8882948 (Version 1)
Quarter: 2012Q4

REPORT INFORMATION
  Report Type: 
  Country: BR (occurrence: BR)
  Receive Date: 20121102
  Receipt Date: 20121102
  Transmission Date: 20130627
  Serious: Yes (Other)
  Sender: FDA-Public Use
  Company Number: PHHY2012BR041217

PATIENT
  Sex: Female
  Weight: 68 kg

DRUGS (2)
  1. FORASEQ [Suspect]
     Indication: BRONCHIOLITIS
     Dosage: at 1 inhalation of each treatment in the morning and 1 inhalation of each treatment at night,
     Dates: start: 20120503
  2. SALINE [Concomitant]
     Route: 067

REACTIONS (5)
  - Anaemia [Recovered/Resolved]
  - Wrong technique in drug usage process [Unknown]
  - Dyspnoea [Recovered/Resolved]
  - Maternal exposure during pregnancy [Unknown]
  - Drug ineffective [Unknown]
